FAERS Safety Report 9350684 (Version 4)
Quarter: 2013Q3

REPORT INFORMATION
  Report Type: Spontaneous
  Country: JP (occurrence: JP)
  Receive Date: 20130617
  Receipt Date: 20130822
  Transmission Date: 20140515
  Serious: Yes (Hospitalization)
  Sender: FDA-Public Use
  Company Number: PHHY2013JP061048

PATIENT
  Age: 84 Year
  Sex: Female

DRUGS (17)
  1. EXELON PATCH [Suspect]
     Indication: DEMENTIA ALZHEIMER^S TYPE
     Dosage: 4.5 MG, DAILY
     Route: 062
     Dates: start: 20130304
  2. EXELON PATCH [Suspect]
     Dosage: 18 MG, DAILY
     Route: 062
     Dates: start: 20130625
  3. HOKUNALIN [Concomitant]
     Dosage: UNK UKN, UNK
     Route: 065
  4. ALDACTONE [Concomitant]
     Dosage: UNK UKN, UNK
     Route: 048
  5. PLATIBIT [Concomitant]
     Dosage: UNK UKN, UNK
     Route: 048
  6. EVISTA [Concomitant]
     Dosage: UNK UKN, UNK
     Route: 048
  7. LIPITOR [Concomitant]
     Dosage: UNK UKN, UNK
     Route: 048
  8. ALLORIN [Concomitant]
     Dosage: UNK UKN, UNK
     Route: 048
  9. RECALBON [Concomitant]
     Dosage: UNK UKN, UNK
     Route: 048
  10. URSO [Concomitant]
     Dosage: UNK UKN, UNK
     Route: 048
  11. TAURINE [Concomitant]
     Dosage: UNK UKN, UNK
     Route: 048
  12. BUFERIN [Concomitant]
     Dosage: 81 MG, UNK
     Route: 048
  13. PLAVIX [Concomitant]
     Dosage: 75 MG, UNK
     Route: 048
  14. COVERSIL [Concomitant]
     Dosage: 2 MG, UNK
     Route: 048
  15. ARTIST [Concomitant]
     Dosage: 2.5 MG, UNK
     Route: 048
  16. GLACTIV [Concomitant]
     Dosage: 50 MG, UNK
     Route: 048
  17. SIGMART [Concomitant]
     Dosage: 10 MG, UNK

REACTIONS (2)
  - Myocardial infarction [Recovering/Resolving]
  - Chest pain [Recovering/Resolving]
